FAERS Safety Report 12882246 (Version 2)
Quarter: 2016Q4

REPORT INFORMATION
  Report Type: Report from Study
  Country: US (occurrence: US)
  Receive Date: 20161025
  Receipt Date: 20161109
  Transmission Date: 20170207
  Serious: No
  Sender: FDA-Public Use
  Company Number: US-AMGEN-USASL2016142631

PATIENT
  Age: 56 Year
  Sex: Female

DRUGS (1)
  1. ENBREL [Suspect]
     Active Substance: ETANERCEPT
     Indication: RHEUMATOID ARTHRITIS
     Dosage: 50 MG, QWK
     Route: 065
     Dates: start: 20160920, end: 2016

REACTIONS (8)
  - Adverse reaction [Unknown]
  - Dizziness [Unknown]
  - Pyrexia [Unknown]
  - Hyperhidrosis [Unknown]
  - Nausea [Unknown]
  - Blood blister [Unknown]
  - Pruritus [Unknown]
  - Rash pustular [Not Recovered/Not Resolved]

NARRATIVE: CASE EVENT DATE: 2016
